FAERS Safety Report 22275941 (Version 1)
Quarter: 2023Q2

REPORT INFORMATION
  Report Type: Spontaneous
  Country: US (occurrence: None)
  Receive Date: 20230501
  Receipt Date: 20230501
  Transmission Date: 20230722
  Serious: Yes (Other)
  Sender: FDA-Public Use
  Company Number: None

PATIENT
  Age: 43 Year
  Sex: Female
  Weight: 117 kg

DRUGS (2)
  1. CREST PRO-HEALTH CLINICAL [Suspect]
     Active Substance: CETYLPYRIDINIUM CHLORIDE
     Indication: Personal hygiene
     Dosage: OTHER QUANTITY : 20 ML;?FREQUENCY : AT BEDTIME;?
     Route: 048
     Dates: start: 20230428, end: 20230429
  2. VITAMINS [Concomitant]
     Active Substance: VITAMINS

REACTIONS (3)
  - Oral discomfort [None]
  - Tongue discomfort [None]
  - Taste disorder [None]

NARRATIVE: CASE EVENT DATE: 20230428
